FAERS Safety Report 11919280 (Version 1)
Quarter: 2016Q1

REPORT INFORMATION
  Report Type: Spontaneous
  Country: TR (occurrence: TR)
  Receive Date: 20160115
  Receipt Date: 20160115
  Transmission Date: 20160526
  Serious: Yes (Other)
  Sender: FDA-Public Use
  Company Number: TR-PAR PHARMACEUTICAL COMPANIES-2016SCPR015093

PATIENT

DRUGS (1)
  1. RISPERIDONE. [Suspect]
     Active Substance: RISPERIDONE
     Indication: AUTISM
     Dosage: 2.5 MG, DAILY
     Route: 048

REACTIONS (2)
  - Systolic dysfunction [Recovered/Resolved]
  - Atrial tachycardia [Recovered/Resolved]
